FAERS Safety Report 14426902 (Version 1)
Quarter: 2018Q1

REPORT INFORMATION
  Report Type: Spontaneous
  Country: FR (occurrence: FR)
  Receive Date: 20180123
  Receipt Date: 20180123
  Transmission Date: 20180509
  Serious: Yes (Other)
  Sender: FDA-Public Use
  Company Number: FR-TEVA-2018-FR-848540

PATIENT
  Age: 57 Year
  Sex: Male

DRUGS (5)
  1. UVEDOSE [Concomitant]
     Active Substance: CHOLECALCIFEROL
  2. CALCIUM [Concomitant]
     Active Substance: CALCIUM
  3. ACIDE ALENDRONIQUE BIOGARAN 70 MG COMPRIM? [Suspect]
     Active Substance: ALENDRONIC ACID
     Indication: OSTEOPOROSIS
     Route: 048
     Dates: start: 20130603
  4. ACIDE ALENDRONIQUE BIOGARAN 70 MG COMPRIM? [Suspect]
     Active Substance: ALENDRONIC ACID
     Indication: OSTEOPOROSIS
     Route: 065
  5. ACIDE ALENDRONIQUE BIOGARAN 70 MG COMPRIM? [Suspect]
     Active Substance: ALENDRONIC ACID
     Indication: OFF LABEL USE

REACTIONS (7)
  - Off label use [Unknown]
  - Intentional product use issue [Unknown]
  - Tooth fracture [Unknown]
  - Abscess oral [Unknown]
  - Tooth abscess [Unknown]
  - Gingival injury [Unknown]
  - Oesophageal pain [Unknown]
